FAERS Safety Report 9403185 (Version 2)
Quarter: 2013Q3

REPORT INFORMATION
  Report Type: Spontaneous
  Country: US (occurrence: None)
  Receive Date: 20130712
  Receipt Date: 20130719
  Transmission Date: 20140515
  Serious: Yes (Hospitalization, Other)
  Sender: FDA-Public Use
  Company Number: COL_13971_2013

PATIENT
  Age: 66 Year
  Sex: 0

DRUGS (2)
  1. COLGATE TOTAL ADVANCED PROSHIELD PEPPERMINT BLAST MOUTH WASH [Suspect]
     Indication: PRODUCT USED FOR UNKNOWN INDICATION
     Dosage: FROM BOTTLE INTO MOUTH TWICE A DAY ORAL
     Route: 048
     Dates: start: 20130630, end: 20130630
  2. NORVASC [Concomitant]

REACTIONS (4)
  - Throat irritation [None]
  - Throat tightness [None]
  - Dyspnoea [None]
  - Speech disorder [None]
